FAERS Safety Report 25140914 (Version 1)
Quarter: 2025Q1

REPORT INFORMATION
  Report Type: Spontaneous
  Country: US (occurrence: None)
  Receive Date: 20250331
  Receipt Date: 20250331
  Transmission Date: 20250409
  Serious: Yes (Disabling, Other)
  Sender: FDA-CTU
  Company Number: None

PATIENT
  Age: 29 Year
  Sex: Female
  Weight: 85.5 kg

DRUGS (3)
  1. EMGALITY [Suspect]
     Active Substance: GALCANEZUMAB-GNLM
     Indication: Migraine
     Route: 058
     Dates: start: 20231229, end: 20240630
  2. DEVICE [Concomitant]
     Active Substance: DEVICE
  3. METFORMIN [Concomitant]
     Active Substance: METFORMIN HYDROCHLORIDE

REACTIONS (14)
  - Anhidrosis [None]
  - Presyncope [None]
  - Alopecia [None]
  - Panic attack [None]
  - Bedridden [None]
  - Inflammation [None]
  - Temperature intolerance [None]
  - Syncope [None]
  - Tachycardia [None]
  - Brain fog [None]
  - Anxiety [None]
  - Panic attack [None]
  - Sweat gland disorder [None]
  - Emotional distress [None]

NARRATIVE: CASE EVENT DATE: 20240702
